FAERS Safety Report 10184044 (Version 2)
Quarter: 2014Q2

REPORT INFORMATION
  Report Type: Spontaneous
  Country: JP (occurrence: JP)
  Receive Date: 20140520
  Receipt Date: 20140527
  Transmission Date: 20141212
  Serious: Yes (Life-Threatening)
  Sender: FDA-Public Use
  Company Number: JP-GLAXOSMITHKLINE-B0994553A

PATIENT
  Age: 7 Decade
  Sex: Female

DRUGS (1)
  1. ARIXTRA [Suspect]
     Indication: PROPHYLAXIS
     Dosage: 2.5MG PER DAY
     Route: 058

REACTIONS (1)
  - Mesenteric haemorrhage [Recovering/Resolving]
